FAERS Safety Report 8013461-6 (Version None)
Quarter: 2011Q4

REPORT INFORMATION
  Report Type: 
  Country: None (occurrence: None)
  Receive Date: 20111229
  Receipt Date: 20111219
  Transmission Date: 20120403
  Serious: Yes (Hospitalization)
  Sender: FDA-Public Use
  Company Number: JP-SANOFI-AVENTIS-2011SA084290

PATIENT
  Sex: Male
  Weight: 65 kg

DRUGS (13)
  1. QUINAPRIL HCL [Concomitant]
     Route: 048
     Dates: start: 20090105
  2. ALL OTHER THERAPEUTIC PRODUCTS [Concomitant]
     Route: 048
     Dates: start: 20090105, end: 20090303
  3. GASMOTIN [Concomitant]
     Route: 048
     Dates: start: 20090603
  4. PLAVIX [Suspect]
     Route: 065
     Dates: start: 20090106
  5. HEPARIN [Concomitant]
     Dosage: DOSE:12000 UNIT(S)
     Dates: start: 20090105, end: 20090105
  6. LANSOPRAZOLE [Concomitant]
     Route: 048
     Dates: start: 20090105, end: 20090602
  7. SIGMART [Concomitant]
     Indication: ANGINA PECTORIS
     Dates: start: 20090105, end: 20090105
  8. ASPIRIN [Concomitant]
     Route: 048
     Dates: start: 20090105
  9. ISOSORBIDE MONONITRATE [Concomitant]
     Indication: ANGINA PECTORIS
     Route: 048
     Dates: start: 20090826
  10. PLAVIX [Suspect]
     Dosage: LOADING DOSE
     Route: 065
     Dates: start: 20090105, end: 20090105
  11. ROSUVASTATIN CALCIUM [Concomitant]
     Route: 048
     Dates: start: 20090105
  12. PANTOSIN [Concomitant]
     Indication: ANGINA PECTORIS
     Dates: start: 20090105, end: 20090303
  13. ADALAT [Concomitant]
     Indication: ANGINA PECTORIS
     Route: 048
     Dates: start: 20090109, end: 20090831

REACTIONS (1)
  - CORONARY ARTERY STENOSIS [None]
